FAERS Safety Report 9278191 (Version 1)
Quarter: 2013Q2

REPORT INFORMATION
  Report Type: Spontaneous
  Country: US (occurrence: US)
  Receive Date: 20130508
  Receipt Date: 20130508
  Transmission Date: 20140414
  Serious: No
  Sender: FDA-Public Use
  Company Number: US-BAYER-2013-054295

PATIENT
  Sex: Female
  Weight: 68 kg

DRUGS (2)
  1. ALEVE SMOOTH GELS [Suspect]
     Indication: ANALGESIC THERAPY
     Dosage: UNK DF, UNK
     Route: 048
  2. ADVIL [Concomitant]

REACTIONS (4)
  - Incorrect dose administered [None]
  - Abdominal discomfort [Not Recovered/Not Resolved]
  - Incorrect dose administered [None]
  - Abdominal pain [Not Recovered/Not Resolved]
